APPROVED DRUG PRODUCT: KANTREX
Active Ingredient: KANAMYCIN SULFATE
Strength: EQ 500MG BASE
Dosage Form/Route: CAPSULE;ORAL
Application: A062726 | Product #001
Applicant: APOTHECON INC DIV BRISTOL MYERS SQUIBB
Approved: Mar 6, 1987 | RLD: No | RS: No | Type: DISCN